FAERS Safety Report 9038328 (Version 1)
Quarter: 2013Q1

REPORT INFORMATION
  Report Type: Report from Study
  Country: US (occurrence: US)
  Receive Date: 20130130
  Receipt Date: 20130130
  Transmission Date: 20140127
  Serious: No
  Sender: FDA-Public Use
  Company Number: US-ABBOTT-12P-163-0950929-00

PATIENT
  Age: 45 Year
  Sex: Female

DRUGS (8)
  1. HUMIRA 40 MG/0.8 ML PEN [Suspect]
     Indication: CROHN^S DISEASE
     Dates: start: 20120613
  2. INTERCORT [Concomitant]
     Indication: CROHN^S DISEASE
     Dosage: 3MG DAILY
     Route: 048
  3. PENTASA [Concomitant]
     Indication: CROHN^S DISEASE
     Dosage: 500MG DAILY
     Route: 048
  4. HUMALOG [Concomitant]
     Indication: TYPE 2 DIABETES MELLITUS
     Dosage: SLIDING SCALE
  5. LANTUS [Concomitant]
     Indication: TYPE 2 DIABETES MELLITUS
     Dosage: 35 UNITS DAILY
     Route: 058
  6. LISINOPRIL [Concomitant]
     Indication: HYPERTENSION
     Dosage: 10MG DAILY
     Route: 048
  7. PERCOCET [Concomitant]
     Indication: PAIN
     Dosage: RARELY
     Route: 048
  8. TYLENOL OTC [Concomitant]
     Indication: PAIN

REACTIONS (9)
  - Feeling abnormal [Not Recovered/Not Resolved]
  - Paraesthesia [Not Recovered/Not Resolved]
  - Upper-airway cough syndrome [Not Recovered/Not Resolved]
  - Back pain [Not Recovered/Not Resolved]
  - Arthralgia [Not Recovered/Not Resolved]
  - Injection site oedema [Not Recovered/Not Resolved]
  - Device malfunction [Unknown]
  - Scratch [Unknown]
  - Incorrect dose administered [Unknown]
